FAERS Safety Report 8133028-9 (Version None)
Quarter: 2012Q1

REPORT INFORMATION
  Report Type: 
  Country: None (occurrence: None)
  Receive Date: 20120213
  Receipt Date: 20120203
  Transmission Date: 20120608
  Serious: Yes (Hospitalization, Other)
  Sender: FDA-Public Use
  Company Number: PHEH2011US012988

PATIENT
  Sex: Female

DRUGS (8)
  1. ZOLPIDEM [Concomitant]
     Indication: INSOMNIA
     Dosage: 10 MG, UNK
     Route: 048
  2. MELOXICAM [Concomitant]
     Dosage: 1 DF, BID
     Route: 048
  3. TRAZODONE HCL [Concomitant]
     Dosage: 75 MG, BEDTIME
     Route: 048
  4. LYRICA [Concomitant]
     Dosage: 1 DF, TID
     Route: 048
  5. BACLOFEN [Concomitant]
     Dosage: UNK, BEDTIME
     Route: 048
  6. GILENYA [Suspect]
     Indication: MULTIPLE SCLEROSIS
     Dosage: 0.5 MG, (1X28), DAILY
     Route: 048
     Dates: start: 20111027
  7. ATIVAN [Concomitant]
     Dosage: 1 DF, TID
     Route: 048
  8. VENTOLIN [Concomitant]
     Dosage: UNK, 1 PUFF

REACTIONS (13)
  - VISION BLURRED [None]
  - GAIT DISTURBANCE [None]
  - CHEST DISCOMFORT [None]
  - PULMONARY EMBOLISM [None]
  - MULTIPLE SCLEROSIS RELAPSE [None]
  - HYPOKALAEMIA [None]
  - HEADACHE [None]
  - ASTHENIA [None]
  - IRON DEFICIENCY ANAEMIA [None]
  - DYSPNOEA [None]
  - EXERCISE TOLERANCE DECREASED [None]
  - PALPITATIONS [None]
  - ACTIVITIES OF DAILY LIVING IMPAIRED [None]
